FAERS Safety Report 11270610 (Version 3)
Quarter: 2016Q1

REPORT INFORMATION
  Report Type: Report from Study
  Country: AT (occurrence: AT)
  Receive Date: 20150714
  Receipt Date: 20160209
  Transmission Date: 20160525
  Serious: Yes (Hospitalization)
  Sender: FDA-Public Use
  Company Number: PHHY2015AT082463

PATIENT
  Age: 81 Year
  Sex: Female
  Weight: 93 kg

DRUGS (6)
  1. ARIMIDEX [Concomitant]
     Active Substance: ANASTROZOLE
     Indication: BREAST CANCER
     Dosage: AS AN ADJUVANT ANTIHORMONAL TREATMENT
     Route: 065
     Dates: start: 201002
  2. FULVESTRANT [Concomitant]
     Active Substance: FULVESTRANT
     Indication: PRODUCT USED FOR UNKNOWN INDICATION
     Dosage: 500 MG
     Route: 065
     Dates: start: 20150824
  3. XARELTO [Concomitant]
     Active Substance: RIVAROXABAN
     Indication: ATRIAL FIBRILLATION
     Dosage: UNK
     Route: 065
  4. AFINITOR [Suspect]
     Active Substance: EVEROLIMUS
     Dosage: 5 MG, UNK
     Route: 048
     Dates: start: 20150701, end: 20150807
  5. AFINITOR [Suspect]
     Active Substance: EVEROLIMUS
     Indication: BREAST CANCER
     Dosage: 10 MG, QD
     Route: 048
     Dates: start: 20150618, end: 20150630
  6. EXEMESTAN [Concomitant]
     Active Substance: EXEMESTANE
     Indication: BREAST CANCER
     Dosage: 25 MG, QD
     Route: 065
     Dates: start: 20150618

REACTIONS (41)
  - Overgrowth fungal [Recovered/Resolved]
  - Nausea [Unknown]
  - Blood uric acid increased [Unknown]
  - Blood urea increased [Unknown]
  - General physical health deterioration [Recovered/Resolved]
  - Platelet count increased [Unknown]
  - Mean cell haemoglobin decreased [Unknown]
  - PO2 increased [Unknown]
  - Blood potassium decreased [Unknown]
  - Alanine aminotransferase increased [Unknown]
  - Blood glucose increased [Unknown]
  - Rib fracture [Unknown]
  - Diarrhoea [Recovered/Resolved]
  - Body temperature increased [Recovered/Resolved]
  - Haematocrit decreased [Unknown]
  - Mean cell haemoglobin concentration decreased [Unknown]
  - Brain natriuretic peptide increased [Unknown]
  - Blood lactic acid increased [Unknown]
  - Blood calcium decreased [Unknown]
  - Pyrexia [Unknown]
  - C-reactive protein increased [Recovered/Resolved]
  - Gamma-glutamyltransferase increased [Unknown]
  - Blood bicarbonate increased [Unknown]
  - Blood creatinine increased [Unknown]
  - Blood alkaline phosphatase increased [Unknown]
  - Febrile infection [Recovered/Resolved]
  - Pneumonia [Recovered/Resolved]
  - Pulmonary congestion [Unknown]
  - Inflammation [Unknown]
  - PCO2 increased [Unknown]
  - Protein total decreased [Unknown]
  - Stomatitis [Not Recovered/Not Resolved]
  - Hypoventilation [Unknown]
  - Glomerular filtration rate decreased [Unknown]
  - White blood cell count increased [Unknown]
  - Blood chloride decreased [Unknown]
  - Vomiting [Recovered/Resolved]
  - Urinary tract infection fungal [Recovered/Resolved]
  - Pleural effusion [Unknown]
  - Blood albumin decreased [Unknown]
  - Haemoglobin decreased [Unknown]

NARRATIVE: CASE EVENT DATE: 20150630
